FAERS Safety Report 15830877 (Version 1)
Quarter: 2019Q1

REPORT INFORMATION
  Report Type: Other
  Country: US (occurrence: US)
  Receive Date: 20190116
  Receipt Date: 20190116
  Transmission Date: 20190417
  Serious: Yes (Death)
  Sender: FDA-Public Use
  Company Number: US-DEXPHARM-20190008

PATIENT
  Age: 62 Year
  Sex: Male

DRUGS (5)
  1. DONEPEZIL. [Suspect]
     Active Substance: DONEPEZIL
  2. CARISOPRODOL. [Suspect]
     Active Substance: CARISOPRODOL
  3. MEMANTINE. [Suspect]
     Active Substance: MEMANTINE
  4. MEPROBAMATE. [Suspect]
     Active Substance: MEPROBAMATE
  5. BUPROPION. [Suspect]
     Active Substance: BUPROPION

REACTIONS (1)
  - Accidental poisoning [Fatal]
